FAERS Safety Report 5761611-4 (Version None)
Quarter: 2008Q2

REPORT INFORMATION
  Report Type: 
  Country: None (occurrence: None)
  Receive Date: 20080606
  Receipt Date: 20080528
  Transmission Date: 20081010
  Serious: Yes (Death, Other)
  Sender: FDA-Public Use
  Company Number: US-PFIZER INC-2007018984

PATIENT
  Sex: Female

DRUGS (2)
  1. CELEBREX [Suspect]
     Dates: start: 20031223, end: 20040112
  2. BEXTRA [Suspect]
     Dates: start: 20030514, end: 20040419

REACTIONS (3)
  - CARDIAC DISORDER [None]
  - CEREBROVASCULAR ACCIDENT [None]
  - RENAL DISORDER [None]
